FAERS Safety Report 9047041 (Version 1)
Quarter: 2013Q1

REPORT INFORMATION
  Report Type: Spontaneous
  Country: US (occurrence: None)
  Receive Date: 20130129
  Receipt Date: 20130129
  Transmission Date: 20140127
  Serious: Yes (Death, Life-Threatening, Hospitalization, Disabling, Congenital Anomaly)
  Sender: FDA-Public Use
  Company Number: None

PATIENT
  Age: 29 Year
  Sex: Female
  Weight: 68.04 kg

DRUGS (1)
  1. YASMIN [Suspect]
     Indication: CONTRACEPTION
     Route: 048
     Dates: start: 20050120, end: 20070223

REACTIONS (8)
  - Congenital pulmonary hypertension [None]
  - Pulmonary hypoplasia [None]
  - Cryptorchism [None]
  - Renal fusion anomaly [None]
  - Supernumerary nipple [None]
  - Maternal exposure before pregnancy [None]
  - Maternal drugs affecting foetus [None]
  - Pregnancy [None]
